FAERS Safety Report 8141535-8 (Version None)
Quarter: 2012Q1

REPORT INFORMATION
  Report Type: 
  Country: None (occurrence: None)
  Receive Date: 20120216
  Receipt Date: 20120210
  Transmission Date: 20120608
  Serious: Yes (Hospitalization)
  Sender: FDA-Public Use
  Company Number: GR-B.I. PHARMACEUTICALS,INC./RIDGEFIELD-2012-EU-00871GB

PATIENT
  Age: 80 Year
  Sex: Female

DRUGS (2)
  1. PRADAXA [Suspect]
     Indication: ATRIAL FIBRILLATION
     Dosage: 220 MG
     Route: 048
     Dates: start: 20111201
  2. PROPAFENONE HCL [Concomitant]
     Indication: ARRHYTHMIA

REACTIONS (4)
  - MELAENA [None]
  - HAEMATOCRIT DECREASED [None]
  - SYNCOPE [None]
  - GASTRIC HAEMORRHAGE [None]
